FAERS Safety Report 4653316-8 (Version None)
Quarter: 2005Q2

REPORT INFORMATION
  Report Type: 
  Country: None (occurrence: None)
  Receive Date: 20050505
  Receipt Date: 20050428
  Transmission Date: 20051028
  Serious: Yes (Hospitalization)
  Sender: FDA-Public Use
  Company Number: 200511501FR

PATIENT
  Age: 61 Year
  Sex: Male

DRUGS (2)
  1. BIRODOGYL [Suspect]
     Indication: INFECTION
     Route: 048
     Dates: start: 20050426, end: 20050428
  2. BIRODOGYL [Suspect]
     Indication: TOOTH DISORDER
     Route: 048
     Dates: start: 20050426, end: 20050428

REACTIONS (3)
  - ABDOMINAL PAIN [None]
  - PANCREATITIS [None]
  - VOMITING [None]
